FAERS Safety Report 8898939 (Version 1)
Quarter: 2012Q4

REPORT INFORMATION
  Report Type: 
  Country: US (occurrence: US)
  Receive Date: 20121109
  Receipt Date: 20121109
  Transmission Date: 20130627
  Serious: Yes (Hospitalization)
  Sender: FDA-Public Use
  Company Number: US-BAYER-2012-116633

PATIENT
  Age: 34 Year
  Sex: Female

DRUGS (3)
  1. BEYAZ [Suspect]
  2. LISINOPRIL/HCTZ [Concomitant]
     Dosage: 10/12.5 mg
     Dates: start: 20110906
  3. CELEXA [Concomitant]
     Dosage: 10 mg, UNK
     Dates: start: 20110126, end: 20110729

REACTIONS (1)
  - Pulmonary embolism [None]
